FAERS Safety Report 9110486 (Version 1)
Quarter: 2013Q1

REPORT INFORMATION
  Report Type: Spontaneous
  Country: US (occurrence: US)
  Receive Date: 20130219
  Receipt Date: 20130219
  Transmission Date: 20140127
  Serious: No
  Sender: FDA-Public Use
  Company Number: US-BRACCO-007746

PATIENT
  Age: 73 Year
  Sex: Female

DRUGS (1)
  1. ISOVUE 370 [Suspect]
     Indication: DIAGNOSTIC PROCEDURE

REACTIONS (1)
  - Poor quality drug administered [Unknown]
